FAERS Safety Report 22820485 (Version 5)
Quarter: 2024Q1

REPORT INFORMATION
  Report Type: Spontaneous
  Country: AU (occurrence: AU)
  Receive Date: 20230814
  Receipt Date: 20240122
  Transmission Date: 20240410
  Serious: Yes (Hospitalization, Other)
  Sender: FDA-Public Use
  Company Number: AU-PFIZER INC-202300269683

PATIENT
  Age: 67 Year
  Sex: Female
  Weight: 97 kg

DRUGS (6)
  1. ENBREL [Suspect]
     Active Substance: ETANERCEPT
     Indication: Rheumatoid arthritis
     Dosage: UNK, WEEKLY
     Dates: start: 20230629
  2. ENBREL [Suspect]
     Active Substance: ETANERCEPT
     Dosage: UNK, WEEKLY
     Dates: start: 20230706
  3. LEVOXINE [LEVOTHYROXINE SODIUM] [Concomitant]
     Indication: Thyroid disorder
     Dosage: 100 M,T,W,T; 50 F, SAT/SUN
  4. IRBESARTAN [Concomitant]
     Active Substance: IRBESARTAN
     Indication: Hypertension
     Dosage: UNK (300/25 HCT SUNDAY)
     Dates: start: 2016
  5. NUPENTIN [Concomitant]
     Indication: Neuralgia
     Dosage: 100 MG
     Dates: start: 2020
  6. PANADOL [Concomitant]
     Active Substance: ACETAMINOPHEN
     Indication: Arthritis
     Dosage: UNK
     Dates: start: 2017

REACTIONS (4)
  - Injection site pain [Recovered/Resolved]
  - Lethargy [Recovered/Resolved]
  - Dizziness [Recovered/Resolved]
  - Herpes zoster [Unknown]
